FAERS Safety Report 16475339 (Version 1)
Quarter: 2019Q2

REPORT INFORMATION
  Report Type: Spontaneous
  Country: US (occurrence: US)
  Receive Date: 20190625
  Receipt Date: 20190625
  Transmission Date: 20190711
  Serious: No
  Sender: FDA-Public Use
  Company Number: US-SA-2019SA171367

PATIENT
  Age: 75 Year
  Sex: Male

DRUGS (1)
  1. RENVELA [Suspect]
     Active Substance: SEVELAMER CARBONATE
     Indication: BLOOD PHOSPHORUS DECREASED
     Dosage: 3 AT EACH MEALS AND 2 AT NIGHT WITH SNACK DAILY

REACTIONS (10)
  - Eating disorder [Not Recovered/Not Resolved]
  - Abdominal pain upper [Not Recovered/Not Resolved]
  - Fall [Unknown]
  - Wheelchair user [Unknown]
  - Nausea [Unknown]
  - Pain [Unknown]
  - Dialysis [Not Recovered/Not Resolved]
  - Asthenia [Unknown]
  - Lethargy [Not Recovered/Not Resolved]
  - Movement disorder [Not Recovered/Not Resolved]

NARRATIVE: CASE EVENT DATE: 201905
